FAERS Safety Report 25807020 (Version 1)
Quarter: 2025Q3

REPORT INFORMATION
  Report Type: Spontaneous
  Country: US (occurrence: None)
  Receive Date: 20250915
  Receipt Date: 20250915
  Transmission Date: 20251020
  Serious: Yes (Life-Threatening, Hospitalization, Disabling)
  Sender: FDA-CTU
  Company Number: None

PATIENT
  Age: 68 Year
  Sex: Female
  Weight: 53.1 kg

DRUGS (3)
  1. INJECTAFER [Suspect]
     Active Substance: FERRIC CARBOXYMALTOSE
     Indication: Serum ferritin decreased
     Dates: start: 20250506, end: 20250513
  2. INJECTAFER [Suspect]
     Active Substance: FERRIC CARBOXYMALTOSE
     Indication: Iron deficiency anaemia
  3. K-phos neutral 250mg - 500 5xday [Concomitant]

REACTIONS (15)
  - Headache [None]
  - Fatigue [None]
  - Arthralgia [None]
  - Chest pain [None]
  - Arthralgia [None]
  - Infusion related reaction [None]
  - Palpitations [None]
  - Syncope [None]
  - Hypophosphataemia [None]
  - Palpitations [None]
  - Pain [None]
  - Muscle atrophy [None]
  - Gait disturbance [None]
  - Osteomalacia [None]
  - Quality of life decreased [None]

NARRATIVE: CASE EVENT DATE: 20250506
